FAERS Safety Report 17891664 (Version 6)
Quarter: 2022Q3

REPORT INFORMATION
  Report Type: Spontaneous
  Country: JP (occurrence: JP)
  Receive Date: 20200612
  Receipt Date: 20220713
  Transmission Date: 20221026
  Serious: Yes (Other)
  Sender: FDA-Public Use
  Company Number: JP-GSKNCCC-CASE-00957445_AE-29597

PATIENT

DRUGS (10)
  1. REQUIP [Suspect]
     Active Substance: ROPINIROLE HYDROCHLORIDE
     Indication: Parkinson^s disease
     Dosage: 10 MG, QD, AFTER BREAKFAST
     Route: 048
     Dates: end: 202003
  2. REQUIP [Suspect]
     Active Substance: ROPINIROLE HYDROCHLORIDE
     Dosage: 8 MG, QD AFTER BREAKFAST
     Route: 048
     Dates: start: 202004, end: 20200811
  3. REQUIP [Suspect]
     Active Substance: ROPINIROLE HYDROCHLORIDE
     Dosage: 4 MG, QD
     Route: 048
     Dates: start: 20200812
  4. CARBIDOPA\LEVODOPA [Suspect]
     Active Substance: CARBIDOPA\LEVODOPA
     Indication: Parkinson^s disease
     Dosage: 1 DF, QID (MORNING/AFTER BREAKFAST, 10 AM, 3 PM, AFTER DINNER)
     Route: 048
  5. AZILECT [Suspect]
     Active Substance: RASAGILINE MESYLATE
     Dosage: 1 MG, QD AFTER BREAKFAST
     Route: 048
     Dates: start: 20200603
  6. TSUMURA SHAKUYAKUKANZOTO EXTRACT GRANULES [Concomitant]
     Dosage: 2.5 G, BID DURING BREAKFAST AND DINNER
     Route: 048
  7. VONOPRAZAN FUMARATE [Concomitant]
     Active Substance: VONOPRAZAN FUMARATE
     Dosage: 20 MG, QD AFTER BREAKFAST
     Route: 048
     Dates: start: 202001
  8. MAGNESIUM OXIDE [Concomitant]
     Active Substance: MAGNESIUM OXIDE
     Dosage: 330 MG, BID AFTER BREAKFAST AND DINNER
     Route: 048
  9. DILTIAZEM HYDROCHLORIDE [Concomitant]
     Active Substance: DILTIAZEM HYDROCHLORIDE
     Dosage: 30 MG, TID AFTER EVERY MEAL
     Route: 048
  10. BENIDIPINE HYDROCHLORIDE [Concomitant]
     Active Substance: BENIDIPINE HYDROCHLORIDE
     Dosage: 4 MG, QD AT BEDTIME
     Route: 048

REACTIONS (3)
  - Sudden onset of sleep [Unknown]
  - Loss of consciousness [Unknown]
  - Dyskinesia [Recovering/Resolving]

NARRATIVE: CASE EVENT DATE: 20181001
